FAERS Safety Report 17186918 (Version 4)
Quarter: 2020Q2

REPORT INFORMATION
  Report Type: Spontaneous
  Country: US (occurrence: US)
  Receive Date: 20191220
  Receipt Date: 20200603
  Transmission Date: 20200713
  Serious: Yes (Hospitalization)
  Sender: FDA-Public Use
  Company Number: US-ACTELION-A-US2019-199533

PATIENT
  Age: 40 Year
  Sex: Female
  Weight: 105.67 kg

DRUGS (6)
  1. REMODULIN [Concomitant]
     Active Substance: TREPROSTINIL
     Dosage: UNK
     Dates: start: 20200520
  2. TADALAFIL. [Concomitant]
     Active Substance: TADALAFIL
  3. UPTRAVI [Suspect]
     Active Substance: SELEXIPAG
     Dosage: UNK
     Route: 048
  4. OPSUMIT [Suspect]
     Active Substance: MACITENTAN
     Indication: PULMONARY HYPERTENSION
     Dosage: 10 MG, QD
     Route: 048
     Dates: start: 20160501
  5. UPTRAVI [Suspect]
     Active Substance: SELEXIPAG
     Indication: PULMONARY HYPERTENSION
     Dosage: 1600 MCG, BID
     Route: 048
  6. OXYGEN. [Concomitant]
     Active Substance: OXYGEN

REACTIONS (12)
  - Headache [Unknown]
  - Gastric disorder [Unknown]
  - Acute respiratory failure [Recovering/Resolving]
  - Condition aggravated [Recovering/Resolving]
  - Pulmonary hypertension [Recovering/Resolving]
  - Pneumonitis [Unknown]
  - General physical health deterioration [Unknown]
  - Dyspnoea [Recovered/Resolved]
  - Nausea [Recovering/Resolving]
  - Catheterisation cardiac abnormal [Recovering/Resolving]
  - Diarrhoea [Recovering/Resolving]
  - Dyspnoea exertional [Not Recovered/Not Resolved]

NARRATIVE: CASE EVENT DATE: 20191205
